FAERS Safety Report 5475899-0 (Version None)
Quarter: 2007Q4

REPORT INFORMATION
  Report Type: 
  Country: None (occurrence: None)
  Receive Date: 20071003
  Receipt Date: 20070921
  Transmission Date: 20080405
  Serious: Yes (Hospitalization, Other)
  Sender: FDA-Public Use
  Company Number: US-GENENTECH-248194

PATIENT
  Sex: Male
  Weight: 72.109 kg

DRUGS (14)
  1. BEVACIZUMAB [Suspect]
     Indication: COLORECTAL CANCER METASTATIC
     Dosage: 385.5 MG, Q2W
     Route: 042
     Dates: start: 20070326
  2. OXALIPLATIN [Suspect]
     Indication: COLON CANCER METASTATIC
     Dosage: 65 MG/M2, Q2W
     Route: 042
     Dates: start: 20070326
  3. FLUOROURACIL [Concomitant]
     Indication: COLON CANCER METASTATIC
     Dosage: 300 MG/M2, UNK
     Route: 042
     Dates: start: 20070326
  4. FLUOROURACIL [Concomitant]
     Dosage: 1800 MG/M2, UNK
     Route: 042
     Dates: start: 20070326
  5. LEUCOVORIN [Concomitant]
     Indication: COLON CANCER METASTATIC
     Dosage: 400 MG/M2, UNK
     Route: 042
     Dates: start: 20070326
  6. COUMADIN [Concomitant]
     Indication: ATRIAL FIBRILLATION
     Dosage: 5 MG, UNK
     Route: 048
     Dates: start: 20070201, end: 20070730
  7. COZAAR [Concomitant]
     Indication: HYPERTENSION
     Dosage: 50 MG, BID
     Route: 048
     Dates: start: 19920101, end: 20070730
  8. CARDIZEM [Concomitant]
     Indication: HYPERTENSION
     Dosage: 60 MG, TID
     Route: 049
     Dates: start: 20061101, end: 20070730
  9. PEPCID [Concomitant]
     Indication: DYSPEPSIA
     Dosage: 20 MG, BID
     Route: 048
     Dates: start: 20070201, end: 20070730
  10. DIGITEK [Concomitant]
     Indication: ATRIAL FIBRILLATION
     Dosage: 0.25 MG, QD
     Route: 048
     Dates: start: 20070201, end: 20070730
  11. LIPITOR [Concomitant]
     Indication: HYPERCHOLESTEROLAEMIA
     Dosage: 10 MG, QD
     Route: 048
     Dates: start: 19940101, end: 20070730
  12. MULTI-VITAMIN [Concomitant]
     Indication: DRUG USE FOR UNKNOWN INDICATION
     Dosage: 1 UNK, QD
     Route: 048
     Dates: start: 20070201, end: 20070730
  13. NYSTATIN [Concomitant]
     Indication: ORAL CANDIDIASIS
     Dosage: 5 ML, QID
     Route: 048
     Dates: start: 20070720, end: 20070730
  14. MEGACE [Concomitant]
     Indication: ANOREXIA
     Dosage: 400 MG, BID
     Route: 048
     Dates: start: 20070417, end: 20070730

REACTIONS (1)
  - PARANEOPLASTIC SYNDROME [None]
